FAERS Safety Report 23573775 (Version 4)
Quarter: 2024Q3

REPORT INFORMATION
  Report Type: Spontaneous
  Country: DE (occurrence: DE)
  Receive Date: 20240228
  Receipt Date: 20240722
  Transmission Date: 20241017
  Serious: Yes (Other)
  Sender: CELLTRION
  Company Number: DE-CELLTRION INC.-2024DE004625

PATIENT

DRUGS (4)
  1. TRASTUZUMAB [Suspect]
     Active Substance: TRASTUZUMAB
     Indication: Product used for unknown indication
     Dosage: UNK
     Route: 065
  2. KISQALI [Suspect]
     Active Substance: RIBOCICLIB
     Indication: Breast cancer metastatic
     Dosage: 600 MG, QD (SCHEMA 21 DAYS INTAKE, 7 DAYS PAUSE)/{CNAPPROVALNUMBER_NGX}NOT APPLICABLE{/CNAPPROVALNUM
     Route: 048
     Dates: start: 20210830, end: 20220516
  3. KISQALI [Suspect]
     Active Substance: RIBOCICLIB
     Dosage: 600 MG, QD (SCHEMA 21 DAYS INTAKE, 7 DAYS PAUSE)/{CNAPPROVALNUMBER_NGX}NOT APPLICABLE{/CNAPPROVALNUM
     Route: 048
     Dates: start: 20220530, end: 20230426
  4. LETROZOLE [Suspect]
     Active Substance: LETROZOLE
     Indication: Breast cancer metastatic
     Dosage: 2.5 MG, QD/{CNAPPROVALNUMBER_NGX}NOT APPLICABLE{/CNAPPROVALNUMBER_NGX}
     Route: 048
     Dates: start: 20210830, end: 20230402

REACTIONS (4)
  - Alanine aminotransferase abnormal [Unknown]
  - Transaminases increased [Recovered/Resolved]
  - Gamma-glutamyltransferase increased [Unknown]
  - Nausea [Unknown]

NARRATIVE: CASE EVENT DATE: 20230428
